FAERS Safety Report 4650216-4 (Version None)
Quarter: 2005Q2

REPORT INFORMATION
  Report Type: 
  Country: None (occurrence: None)
  Receive Date: 20050429
  Receipt Date: 20050419
  Transmission Date: 20051028
  Serious: Yes (Hospitalization)
  Sender: FDA-Public Use
  Company Number: 163-20785-05040398

PATIENT
  Age: 37 Year
  Sex: Male

DRUGS (2)
  1. THALOMID [Suspect]
     Indication: HODGKIN'S DISEASE
     Dosage: 300 MG, DAILY, ORAL
     Route: 048
     Dates: start: 20010803
  2. STEROIDS [Suspect]

REACTIONS (1)
  - ASEPTIC NECROSIS BONE [None]
